FAERS Safety Report 13870269 (Version 2)
Quarter: 2017Q3

REPORT INFORMATION
  Report Type: Spontaneous
  Country: US (occurrence: US)
  Receive Date: 20170815
  Receipt Date: 20170828
  Transmission Date: 20171127
  Serious: Yes (Hospitalization)
  Sender: FDA-Public Use
  Company Number: US-BIOMARINAP-US-2017-115032

PATIENT
  Age: 28 Year
  Sex: Female
  Weight: 139 kg

DRUGS (1)
  1. KUVAN [Suspect]
     Active Substance: SAPROPTERIN DIHYDROCHLORIDE
     Indication: AMINO ACID LEVEL DECREASED
     Dosage: 2500 MG, QD
     Route: 048
     Dates: start: 20150509

REACTIONS (4)
  - Transient ischaemic attack [Recovering/Resolving]
  - Loss of consciousness [Recovering/Resolving]
  - Hemiparaesthesia [Recovering/Resolving]
  - Facial paralysis [Recovering/Resolving]

NARRATIVE: CASE EVENT DATE: 20170807
